FAERS Safety Report 23719632 (Version 1)
Quarter: 2024Q2

REPORT INFORMATION
  Report Type: Spontaneous
  Country: US (occurrence: None)
  Receive Date: 20240408
  Receipt Date: 20240408
  Transmission Date: 20240716
  Serious: No
  Sender: FDA-Public Use
  Company Number: None

PATIENT
  Sex: Female

DRUGS (6)
  1. KESIMPTA [Suspect]
     Active Substance: OFATUMUMAB
     Indication: Multiple sclerosis
     Dosage: OTHER FREQUENCY : EVERY 28 DAYS;?
     Route: 058
     Dates: start: 20210914
  2. BACLOFEN [Concomitant]
     Active Substance: BACLOFEN
  3. BONIVA [Concomitant]
     Active Substance: IBANDRONATE SODIUM
  4. LORATADINE [Concomitant]
     Active Substance: LORATADINE
  5. LYRICA [Concomitant]
     Active Substance: PREGABALIN
  6. OXYBUTYNIN [Concomitant]
     Active Substance: OXYBUTYNIN\OXYBUTYNIN CHLORIDE

REACTIONS (1)
  - Intentional dose omission [None]
